FAERS Safety Report 10614601 (Version 1)
Quarter: 2014Q4

REPORT INFORMATION
  Report Type: Spontaneous
  Country: IN (occurrence: IN)
  Receive Date: 20141130
  Receipt Date: 20141130
  Transmission Date: 20150529
  Serious: Yes (Death, Hospitalization)
  Sender: FDA-Public Use
  Company Number: PHHY2014IN152325

PATIENT
  Age: 64 Year
  Sex: Male

DRUGS (2)
  1. LEVODOPA+CARBIDOPA [Suspect]
     Active Substance: CARBIDOPA\LEVODOPA
     Indication: PRODUCT USED FOR UNKNOWN INDICATION
     Route: 065
  2. RIVASTIGMINE [Concomitant]
     Active Substance: RIVASTIGMINE
     Indication: PRODUCT USED FOR UNKNOWN INDICATION
     Dosage: 3 MG, BID
     Route: 065

REACTIONS (15)
  - Dyskinesia [Unknown]
  - Hyperhidrosis [Unknown]
  - Hypotension [Unknown]
  - Clonus [Unknown]
  - Extensor plantar response [Unknown]
  - Pyrexia [Unknown]
  - Myoclonus [Unknown]
  - Depressed level of consciousness [Unknown]
  - Musculoskeletal stiffness [Unknown]
  - Heart rate increased [Unknown]
  - Mental disorder [Unknown]
  - Hyporeflexia [Unknown]
  - Cardiac arrest [Fatal]
  - Tachypnoea [Unknown]
  - Serotonin syndrome [Unknown]
